FAERS Safety Report 22093883 (Version 1)
Quarter: 2023Q1

REPORT INFORMATION
  Report Type: Spontaneous
  Country: ES (occurrence: ES)
  Receive Date: 20230314
  Receipt Date: 20230314
  Transmission Date: 20230418
  Serious: Yes (Life-Threatening, Hospitalization, Other)
  Sender: FDA-Public Use
  Company Number: None

PATIENT
  Age: 66 Year
  Sex: Male
  Weight: 59.7 kg

DRUGS (6)
  1. DOXORUBICIN [Interacting]
     Active Substance: DOXORUBICIN
     Indication: Plasma cell myeloma
     Dosage: 43 MG, 24 H, 25 MG/M2 (43 MG) IV TO BE INFUSED OVER 24 HOURS ON 29 AND 30 JANUARY
     Route: 042
     Dates: start: 20230129, end: 20230130
  2. CYCLOPHOSPHAMIDE [Interacting]
     Active Substance: CYCLOPHOSPHAMIDE
     Indication: Plasma cell myeloma
     Dosage: 380 MG EVERY 12 HOURS FOR 3 DAYS
     Route: 042
     Dates: start: 20230126, end: 20230128
  3. VINCRISTINE [Interacting]
     Active Substance: VINCRISTINE
     Indication: Plasma cell myeloma
     Dosage: 2 MG, 1 {TOTAL}, (EQUIVALENTE FARMAC?UTICO GEN?RICO [GENERIC PHARMACEUTICAL EQUIVALENT]), SINGLE DOS
     Route: 042
     Dates: start: 20230129, end: 20230129
  4. DARZALEX [Interacting]
     Active Substance: DARATUMUMAB
     Indication: Plasma cell myeloma
     Dosage: 1800 MG, 1X  A WEEK ,1 DOSE EVERY 7 DAYS
     Route: 058
     Dates: start: 20230125, end: 20230201
  5. NEULASTA [Concomitant]
     Active Substance: PEGFILGRASTIM
     Dosage: 6 MG, 1 {TOTAL}, 1 0.6-ML PRE-FILLED SYRINGE, SINGLE DOSE
     Route: 058
     Dates: start: 20230203, end: 20230203
  6. DEXAMETHASONE [Concomitant]
     Active Substance: DEXAMETHASONE
     Indication: Plasma cell myeloma
     Dosage: 20 MG, 24 H, (722A), 20 MG DAILY INITIALLY, WITH GRADUAL DOSE REDUCTION UNTIL 2 MG DAILY
     Route: 048
     Dates: start: 20230117

REACTIONS (2)
  - Septic shock [Recovered/Resolved]
  - Pancytopenia [Not Recovered/Not Resolved]

NARRATIVE: CASE EVENT DATE: 20230203
